FAERS Safety Report 20734662 (Version 1)
Quarter: 2022Q2

REPORT INFORMATION
  Report Type: Spontaneous
  Country: IN (occurrence: IN)
  Receive Date: 20220421
  Receipt Date: 20220421
  Transmission Date: 20220721
  Serious: Yes (Hospitalization)
  Sender: FDA-Public Use
  Company Number: IN-MYLANLABS-2022M1028991

PATIENT
  Age: 38 Year
  Sex: Male

DRUGS (8)
  1. VANCOMYCIN [Suspect]
     Active Substance: VANCOMYCIN
     Indication: Evidence based treatment
     Dosage: 1 GRAM, BID
     Route: 065
  2. VANCOMYCIN [Suspect]
     Active Substance: VANCOMYCIN
     Indication: Endocarditis staphylococcal
     Dosage: 1 GRAM, TID, DOSE WAS INCREASED TO 1GM THRICE DAILY
     Route: 065
  3. VANCOMYCIN [Suspect]
     Active Substance: VANCOMYCIN
     Indication: Staphylococcal infection
  4. IMMUNE GLOBULIN NOS [Concomitant]
     Active Substance: IMMUNE GLOBULIN NOS
     Indication: Guillain-Barre syndrome
     Dosage: UNK
     Route: 042
  5. ACYCLOVIR [Concomitant]
     Active Substance: ACYCLOVIR
     Indication: Varicella
     Dosage: UNK
     Route: 042
  6. GENTAMICIN [Concomitant]
     Active Substance: GENTAMICIN
     Indication: Evidence based treatment
     Dosage: 80 MILLIGRAMS THRICE DAILY
     Route: 065
  7. RIFAMPIN [Concomitant]
     Active Substance: RIFAMPIN
     Indication: Endocarditis staphylococcal
     Dosage: UNK
     Route: 065
  8. RIFAMPIN [Concomitant]
     Active Substance: RIFAMPIN
     Indication: Staphylococcal infection

REACTIONS (1)
  - Therapy non-responder [Unknown]
